FAERS Safety Report 9345921 (Version 1)
Quarter: 2013Q2

REPORT INFORMATION
  Report Type: Spontaneous
  Country: PH (occurrence: PH)
  Receive Date: 20130613
  Receipt Date: 20130613
  Transmission Date: 20140414
  Serious: Yes (Death)
  Sender: FDA-Public Use
  Company Number: PH-009507513-1306PHL005009

PATIENT
  Age: 51 Year
  Sex: Male

DRUGS (1)
  1. JANUMET [Suspect]
     Dosage: 2 DF, BID

REACTIONS (1)
  - Gun shot wound [Fatal]
